FAERS Safety Report 10167976 (Version 1)
Quarter: 2014Q2

REPORT INFORMATION
  Report Type: Spontaneous
  Country: JP (occurrence: JP)
  Receive Date: 20140512
  Receipt Date: 20140512
  Transmission Date: 20141212
  Serious: Yes (Hospitalization)
  Sender: FDA-Public Use
  Company Number: JP-GLAXOSMITHKLINE-B0982936A

PATIENT
  Age: 27 Year
  Sex: Female

DRUGS (6)
  1. LAMICTAL [Suspect]
     Indication: EPILEPSY
     Dosage: 25MG TWICE PER DAY
     Route: 048
     Dates: start: 20140312, end: 20140326
  2. DEPAKENE-R [Concomitant]
     Indication: EPILEPSY
     Dosage: 200MG TWICE PER DAY
     Route: 048
     Dates: start: 20130903, end: 20131209
  3. DEPAKENE-R [Concomitant]
     Indication: EPILEPSY
     Route: 048
     Dates: start: 20131210, end: 20140310
  4. DEPAKENE-R [Concomitant]
     Indication: EPILEPSY
     Dosage: 200MG TWICE PER DAY
     Route: 048
     Dates: start: 20140311
  5. MAXALT [Concomitant]
     Indication: MIGRAINE
     Route: 048
     Dates: start: 20140311
  6. LOXONIN [Concomitant]
     Indication: MIGRAINE
     Route: 048
     Dates: start: 20140311

REACTIONS (4)
  - Rash erythematous [Recovered/Resolved]
  - Lymphadenopathy [Recovered/Resolved]
  - Pigmentation disorder [Unknown]
  - Erythema [Recovering/Resolving]
